FAERS Safety Report 4554077-3 (Version None)
Quarter: 2005Q1

REPORT INFORMATION
  Report Type: 
  Country: None (occurrence: None)
  Receive Date: 20050118
  Receipt Date: 20041206
  Transmission Date: 20050727
  Serious: Yes (Disabling)
  Sender: FDA-Public Use
  Company Number: US-MERCK-0412USA00776

PATIENT
  Age: 59 Year
  Sex: Female

DRUGS (1)
  1. VIOXX [Suspect]
     Route: 048
     Dates: start: 20010101

REACTIONS (11)
  - ACTIVITIES OF DAILY LIVING IMPAIRED [None]
  - ARTHROPATHY [None]
  - BLOOD PRESSURE ABNORMAL [None]
  - DIABETES MELLITUS [None]
  - FATIGUE [None]
  - INTERVERTEBRAL DISC DISPLACEMENT [None]
  - INTERVERTEBRAL DISC PROTRUSION [None]
  - OSTEOARTHRITIS [None]
  - PAIN [None]
  - SCIATICA [None]
  - SPINAL COLUMN STENOSIS [None]
